FAERS Safety Report 14437010 (Version 9)
Quarter: 2018Q2

REPORT INFORMATION
  Report Type: Report from Study
  Country: BE (occurrence: BE)
  Receive Date: 20180125
  Receipt Date: 20180511
  Transmission Date: 20180711
  Serious: Yes (Hospitalization)
  Sender: FDA-Public Use
  Company Number: BE-ROCHE-2055917

PATIENT
  Age: 67 Year
  Sex: Male
  Weight: 100 kg

DRUGS (16)
  1. INEGY [Suspect]
     Active Substance: EZETIMIBE\SIMVASTATIN
     Indication: HYPERCHOLESTEROLAEMIA
     Route: 065
     Dates: start: 20150602, end: 20160204
  2. SODIUM BICARBONATE. [Suspect]
     Active Substance: SODIUM BICARBONATE
     Indication: ACIDOSIS
     Route: 065
     Dates: start: 20150602
  3. TACROLIMUS. [Suspect]
     Active Substance: TACROLIMUS
     Indication: RENAL TRANSPLANT
     Route: 065
     Dates: start: 20151231, end: 20160221
  4. NEORAL [Concomitant]
     Active Substance: CYCLOSPORINE
     Indication: RENAL TRANSPLANT
     Dosage: 100 MG, BID
     Route: 065
     Dates: start: 20160227
  5. PROGRAFT [Suspect]
     Active Substance: TACROLIMUS
     Indication: RENAL TRANSPLANT
     Dosage: 3.5 MG, BID
     Route: 065
     Dates: start: 20150520, end: 20151117
  6. ENALAPRIL [Suspect]
     Active Substance: ENALAPRIL
     Indication: HYPERTENSION
     Route: 065
     Dates: start: 20150818, end: 20160112
  7. NOVOMIX [Concomitant]
     Active Substance: INSULIN ASPART
     Indication: DIABETES MELLITUS
     Dosage: 36 U
     Route: 065
     Dates: start: 20160101
  8. MEDROL [Suspect]
     Active Substance: METHYLPREDNISOLONE
     Route: 065
     Dates: start: 20150519
  9. ZINNAT [Suspect]
     Active Substance: CEFUROXIME AXETIL
     Indication: INFECTION
     Route: 065
     Dates: start: 20160119, end: 20160120
  10. METHYLPREDNISOLONE. [Suspect]
     Active Substance: METHYLPREDNISOLONE
     Indication: RENAL TRANSPLANT
     Dosage: UNK
     Route: 065
  11. L-THYROXINE [Concomitant]
     Active Substance: LEVOTHYROXINE
     Indication: HYPOTHYROIDISM
     Route: 065
     Dates: start: 20090731
  12. OMEPRAZOLE. [Suspect]
     Active Substance: OMEPRAZOLE
     Indication: PROPHYLAXIS
     Route: 065
     Dates: start: 20150530, end: 20160112
  13. MYCOPHENOLATE MOFETIL. [Suspect]
     Active Substance: MYCOPHENOLATE MOFETIL
     Indication: RENAL TRANSPLANT
     Route: 048
     Dates: start: 20150520, end: 20151117
  14. SOLU-MEDROL [Suspect]
     Active Substance: METHYLPREDNISOLONE SODIUM SUCCINATE
     Indication: RENAL TRANSPLANT
     Route: 065
  15. MEDROL [Suspect]
     Active Substance: METHYLPREDNISOLONE
     Indication: RENAL TRANSPLANT
     Route: 065
  16. NOVOLIN [Concomitant]
     Active Substance: INSULIN HUMAN
     Indication: DIABETES MELLITUS
     Dosage: 30 U
     Route: 065
     Dates: start: 20160101

REACTIONS (7)
  - Extremity necrosis [Recovered/Resolved]
  - Bronchopneumopathy [Recovered/Resolved]
  - Neutropenia [Not Recovered/Not Resolved]
  - Osteomyelitis [Recovered/Resolved]
  - Lymphangitis [Not Recovered/Not Resolved]
  - Osteitis [Recovered/Resolved]
  - Toe amputation [Recovered/Resolved]

NARRATIVE: CASE EVENT DATE: 20150921
